FAERS Safety Report 14054644 (Version 1)
Quarter: 2017Q4

REPORT INFORMATION
  Report Type: Report from Study
  Country: US (occurrence: US)
  Receive Date: 20171006
  Receipt Date: 20171006
  Transmission Date: 20180321
  Serious: Yes (Hospitalization)
  Sender: FDA-Public Use
  Company Number: US-BIOGEN-2005BI008189

PATIENT
  Age: 33 Year
  Sex: Female
  Weight: 54.48 kg

DRUGS (1)
  1. AVONEX [Suspect]
     Active Substance: INTERFERON BETA-1A
     Indication: MULTIPLE SCLEROSIS
     Route: 030
     Dates: start: 20010413

REACTIONS (4)
  - Subarachnoid haemorrhage [Recovered/Resolved]
  - Amnesia [Recovered/Resolved]
  - Memory impairment [Not Recovered/Not Resolved]
  - Blindness [Recovered/Resolved]

NARRATIVE: CASE EVENT DATE: 200405
